FAERS Safety Report 7548013-5 (Version None)
Quarter: 2011Q2

REPORT INFORMATION
  Report Type: 
  Country: None (occurrence: None)
  Receive Date: 20110524
  Receipt Date: 20110127
  Transmission Date: 20111010
  Serious: No
  Sender: FDA-Public Use
  Company Number: 026565

PATIENT
  Sex: Female
  Weight: 80.7 kg

DRUGS (9)
  1. TOPAMAX [Concomitant]
  2. VITAMIN D [Concomitant]
  3. FOLIC ACID [Concomitant]
  4. CIMZIA [Suspect]
     Indication: CROHN'S DISEASE
     Dosage: 400 MG 1X/MONTH SUBCUTANEOUS
     Route: 058
     Dates: start: 20091001
  5. ASPIRIN [Concomitant]
  6. PRILOSEC [Concomitant]
  7. SIMVASTATIN [Concomitant]
  8. EFFEXOR XR [Concomitant]
  9. METOPROLOL SUCCINATE [Concomitant]

REACTIONS (1)
  - RASH GENERALISED [None]
